FAERS Safety Report 24878163 (Version 1)
Quarter: 2025Q1

REPORT INFORMATION
  Report Type: Spontaneous
  Country: FR (occurrence: FR)
  Receive Date: 20250123
  Receipt Date: 20250123
  Transmission Date: 20250408
  Serious: Yes (Hospitalization, Other)
  Sender: CHEPLAPHARM
  Company Number: None

PATIENT
  Age: 30 Year
  Sex: Male

DRUGS (3)
  1. CLONAZEPAM [Suspect]
     Active Substance: CLONAZEPAM
     Indication: Drug dependence
     Dates: start: 202307
  2. COCAINE [Suspect]
     Active Substance: COCAINE
     Dates: start: 202307
  3. PREGABALIN [Suspect]
     Active Substance: PREGABALIN
     Indication: Drug dependence
     Dates: start: 202307

REACTIONS (6)
  - Ventricular pre-excitation [Recovered/Resolved]
  - Drug abuse [Recovered/Resolved]
  - Coma [Recovered/Resolved]
  - Pneumonia [Unknown]
  - Hyperleukocytosis [Unknown]
  - Multisystem inflammatory syndrome [Unknown]

NARRATIVE: CASE EVENT DATE: 20230719
